FAERS Safety Report 10963282 (Version 1)
Quarter: 2015Q1

REPORT INFORMATION
  Report Type: Spontaneous
  Country: US (occurrence: US)
  Receive Date: 20150205
  Receipt Date: 20150205
  Transmission Date: 20150721
  Serious: Yes (Death, Hospitalization)
  Sender: FDA-Public Use
  Company Number: US-APOTEX-2015AP006237

PATIENT
  Age: 50 Year
  Sex: Female

DRUGS (9)
  1. ETHANOL [Suspect]
     Active Substance: ALCOHOL
  2. FLUOXETINE ORAL SOLUTION USP [Suspect]
     Active Substance: FLUOXETINE\FLUOXETINE HYDROCHLORIDE
     Route: 048
  3. COCAINE [Suspect]
     Active Substance: COCAINE
     Route: 048
  4. CLONAZEPAM TABLETS USP [Suspect]
     Active Substance: CLONAZEPAM
     Route: 048
  5. TRAZODONE HYDROCHLORIDE. [Suspect]
     Active Substance: TRAZODONE HYDROCHLORIDE
     Route: 048
  6. LAMOTRIGINE. [Suspect]
     Active Substance: LAMOTRIGINE
     Route: 048
  7. AMPHETAMINE [Suspect]
     Active Substance: AMPHETAMINE
  8. OMEPRAZOLE. [Suspect]
     Active Substance: OMEPRAZOLE
     Route: 048
  9. ZOLPIDEM TARTRATE. [Suspect]
     Active Substance: ZOLPIDEM TARTRATE

REACTIONS (1)
  - Completed suicide [Fatal]
